FAERS Safety Report 8384235 (Version 6)
Quarter: 2012Q4

REPORT INFORMATION
  Report Type: 
  Country: US (occurrence: US)
  Receive Date: 20120202
  Receipt Date: 20121109
  Transmission Date: 20130627
  Serious: No
  Sender: FDA-Public Use
  Company Number: US-PFIZER INC-2012022789

PATIENT
  Age: 60 Year
  Sex: Female
  Weight: 83 kg

DRUGS (8)
  1. XALKORI [Suspect]
     Indication: NON-SMALL CELL LUNG CANCER
     Dosage: 250 mg, 2x/day
     Route: 048
     Dates: start: 20120113
  2. LIPITOR [Concomitant]
  3. ACETYLSALICYLIC ACID [Concomitant]
     Dosage: UNK
  4. CALCIUM [Concomitant]
     Dosage: UNK
  5. LOPERAMIDE [Concomitant]
     Dosage: UNK
  6. CHERATUSSIN [Concomitant]
     Indication: COUGH
     Dosage: UNK
  7. FUROSEMIDE [Concomitant]
     Dosage: UNK
  8. K-DUR [Concomitant]
     Dosage: 20 mEq, 2x/day

REACTIONS (7)
  - Dysuria [Unknown]
  - Micturition disorder [Unknown]
  - Nausea [Recovering/Resolving]
  - Vomiting [Recovering/Resolving]
  - Dizziness [Unknown]
  - Photopsia [Recovering/Resolving]
  - Oedema peripheral [Unknown]
